FAERS Safety Report 24978125 (Version 2)
Quarter: 2025Q1

REPORT INFORMATION
  Report Type: Spontaneous
  Country: US (occurrence: US)
  Receive Date: 20250217
  Receipt Date: 20250219
  Transmission Date: 20250409
  Serious: Yes (Other)
  Sender: PFIZER
  Company Number: US-PFIZER INC-202500033557

PATIENT
  Age: 67 Year
  Sex: Male

DRUGS (5)
  1. RUXIENCE [Suspect]
     Active Substance: RITUXIMAB-PVVR
     Indication: Lymphoma
  2. RUXIENCE [Suspect]
     Active Substance: RITUXIMAB-PVVR
  3. ACYCLOVIR [Suspect]
     Active Substance: ACYCLOVIR
  4. BENDEKA [Concomitant]
     Active Substance: BENDAMUSTINE HYDROCHLORIDE
  5. BNT162B2 OMICRON (KP.2) [Concomitant]

REACTIONS (3)
  - Nephropathy toxic [Unknown]
  - Allergy to arthropod bite [Recovering/Resolving]
  - Brain fog [Unknown]
